FAERS Safety Report 8263537-3 (Version None)
Quarter: 2012Q2

REPORT INFORMATION
  Report Type: 
  Country: None (occurrence: None)
  Receive Date: 20120405
  Receipt Date: 20120327
  Transmission Date: 20120825
  Serious: Yes (Hospitalization)
  Sender: FDA-Public Use
  Company Number: GB-PERRIGO-12GB002593

PATIENT
  Sex: Male
  Weight: 62 kg

DRUGS (2)
  1. BENDROFLUMETHIAZIDE [Concomitant]
     Indication: HYPERTENSION
     Dosage: UNK
     Route: 048
  2. IBUPROFEN [Suspect]
     Indication: PRODUCT USED FOR UNKNOWN INDICATION
     Dosage: 400 MG, SINGLE
     Route: 048
     Dates: start: 20120324, end: 20120324

REACTIONS (3)
  - FACE OEDEMA [None]
  - HYPERSENSITIVITY [None]
  - LIP SWELLING [None]
